FAERS Safety Report 8316893-1 (Version None)
Quarter: 2012Q2

REPORT INFORMATION
  Report Type: 
  Country: None (occurrence: None)
  Receive Date: 20120427
  Receipt Date: 20120419
  Transmission Date: 20120825
  Serious: Yes (Hospitalization, Other)
  Sender: FDA-Public Use
  Company Number: US-BAYER-2011-123438

PATIENT
  Age: 23 Year
  Sex: Female
  Weight: 56.689 kg

DRUGS (5)
  1. SYNTHROID [Concomitant]
  2. URSODIOL [Concomitant]
     Dosage: UNK
     Dates: start: 20101105
  3. PEPCID [Concomitant]
     Dosage: UNK
     Route: 048
     Dates: start: 20101105
  4. YAZ [Suspect]
     Indication: CONTRACEPTION
     Dosage: UNK
     Route: 048
     Dates: start: 20080101, end: 20101025
  5. LEVOTHYROXINE SODIUM [Concomitant]
     Dosage: UNK
     Route: 048
     Dates: start: 20090101

REACTIONS (5)
  - ABDOMINAL PAIN UPPER [None]
  - CHOLELITHIASIS [None]
  - MENTAL DISORDER [None]
  - PAIN [None]
  - CHOLECYSTITIS CHRONIC [None]
